FAERS Safety Report 4638486-X (Version None)
Quarter: 2005Q2

REPORT INFORMATION
  Report Type: 
  Country: None (occurrence: None)
  Receive Date: 20050418
  Receipt Date: 20050330
  Transmission Date: 20051028
  Serious: Yes (Hospitalization)
  Sender: FDA-Public Use
  Company Number: FR_050306137

PATIENT
  Age: 81 Year
  Sex: Female
  Weight: 63 kg

DRUGS (6)
  1. PROZAC [Suspect]
     Indication: DYSTHYMIC DISORDER
     Dosage: 1 DSG FORM/1 DAY
     Dates: end: 20050113
  2. PREVISCAN (FLUINDIONE) [Concomitant]
  3. OFLOXCET (OFLOXACIN) [Concomitant]
  4. BACTRIM [Concomitant]
  5. FUROSEMIDE [Concomitant]
  6. POTASSIUM CHLORIDE [Concomitant]

REACTIONS (3)
  - DRUG INTERACTION [None]
  - INTERNATIONAL NORMALISED RATIO INCREASED [None]
  - PYELONEPHRITIS ACUTE [None]
